FAERS Safety Report 7330216-6 (Version None)
Quarter: 2011Q1

REPORT INFORMATION
  Report Type: 
  Country: None (occurrence: None)
  Receive Date: 20110303
  Receipt Date: 20110221
  Transmission Date: 20110831
  Serious: Yes (Other)
  Sender: FDA-Public Use
  Company Number: US-GILEAD-2011-0036810

PATIENT
  Age: 64 Year
  Sex: Female

DRUGS (3)
  1. LETAIRIS [Suspect]
     Indication: PRODUCT USED FOR UNKNOWN INDICATION
     Route: 048
     Dates: start: 20110105
  2. REVATIO [Concomitant]
  3. ADCIRCA [Concomitant]

REACTIONS (1)
  - ATRIAL FIBRILLATION [None]
